FAERS Safety Report 16947099 (Version 1)
Quarter: 2019Q4

REPORT INFORMATION
  Report Type: Report from Study
  Country: US (occurrence: US)
  Receive Date: 20191022
  Receipt Date: 20191022
  Transmission Date: 20200122
  Serious: No
  Sender: FDA-Public Use
  Company Number: US-ALNYLAM PHARMACEUTICALS, INC.-ALN-2019-000739

PATIENT
  Sex: Female

DRUGS (1)
  1. ONPATTRO [Suspect]
     Active Substance: PATISIRAN SODIUM
     Indication: HEREDITARY NEUROPATHIC AMYLOIDOSIS
     Dosage: UNK
     Dates: start: 20190903

REACTIONS (6)
  - Fall [Unknown]
  - Movement disorder [Unknown]
  - Oedema peripheral [Unknown]
  - Muscle spasms [Unknown]
  - Hypoaesthesia [Unknown]
  - Thermal burn [Unknown]
